FAERS Safety Report 7134602-9 (Version None)
Quarter: 2010Q4

REPORT INFORMATION
  Report Type: 
  Country: None (occurrence: None)
  Receive Date: 20101203
  Receipt Date: 20060907
  Transmission Date: 20110411
  Serious: Yes (Other)
  Sender: FDA-Public Use
  Company Number: PHHY2006AU02715

PATIENT
  Age: 59 Year
  Sex: Male

DRUGS (3)
  1. NEORAL [Suspect]
     Indication: LUNG TRANSPLANT
     Route: 048
  2. PREDNISOLONE [Concomitant]
  3. MYFORTIC [Concomitant]

REACTIONS (2)
  - DRUG LEVEL CHANGED [None]
  - PROTEINURIA [None]
